FAERS Safety Report 8446265-0 (Version None)
Quarter: 2012Q2

REPORT INFORMATION
  Report Type: 
  Country: None (occurrence: None)
  Receive Date: 20120618
  Receipt Date: 20120608
  Transmission Date: 20120825
  Serious: Yes (Life-Threatening, Hospitalization)
  Sender: FDA-Public Use
  Company Number: US-ACTELION-A-NJ2012-66176

PATIENT

DRUGS (5)
  1. ADCIRCA [Concomitant]
  2. CALCIUM CHANNEL BLOCKERS [Concomitant]
  3. TRACLEER [Suspect]
     Indication: PULMONARY ARTERIAL HYPERTENSION
     Dosage: UNK
     Route: 048
     Dates: start: 20120101
  4. PLAVIX [Concomitant]
  5. ASPIRIN [Concomitant]

REACTIONS (5)
  - HYPOTENSION [None]
  - FATIGUE [None]
  - SICK SINUS SYNDROME [None]
  - DYSPNOEA [None]
  - CARDIAC PACEMAKER INSERTION [None]
